FAERS Safety Report 4655862-X (Version None)
Quarter: 2005Q2

REPORT INFORMATION
  Report Type: 
  Country: None (occurrence: None)
  Receive Date: 20050505
  Receipt Date: 20050425
  Transmission Date: 20051028
  Serious: Yes (Hospitalization, Other)
  Sender: FDA-Public Use
  Company Number: 2005058769

PATIENT
  Sex: Male

DRUGS (1)
  1. BEXTRA [Suspect]
     Indication: LOWER LIMB FRACTURE
     Dosage: 40 MG (40 MG, 1 IN 1 D), ORAL
     Route: 048
     Dates: start: 20050101, end: 20050301

REACTIONS (5)
  - BLISTER [None]
  - ERYTHEMA [None]
  - IMPLANT SITE INFECTION [None]
  - LOCALISED INFECTION [None]
  - PRURITUS [None]
